FAERS Safety Report 5561570-3 (Version None)
Quarter: 2007Q4

REPORT INFORMATION
  Report Type: 
  Country: None (occurrence: None)
  Receive Date: 20071215
  Receipt Date: 20071016
  Transmission Date: 20080405
  Serious: No
  Sender: FDA-Public Use
  Company Number: US-AMGEN-US248132

PATIENT
  Sex: Female

DRUGS (6)
  1. ARANESP [Suspect]
     Indication: RENAL FAILURE CHRONIC
     Route: 065
     Dates: start: 20070901
  2. IRON [Concomitant]
     Route: 065
  3. RENAGEL [Concomitant]
     Route: 065
  4. POTASSIUM CHLORIDE [Concomitant]
     Route: 065
  5. ANTIHYPERTENSIVE MEDICATION NOS [Concomitant]
     Route: 065
  6. HECTORAL [Concomitant]
     Route: 065

REACTIONS (1)
  - PILOERECTION [None]
